FAERS Safety Report 7060098-1 (Version None)
Quarter: 2010Q4

REPORT INFORMATION
  Report Type: 
  Country: None (occurrence: None)
  Receive Date: 20101025
  Receipt Date: 20101018
  Transmission Date: 20110411
  Serious: Yes (Hospitalization, Other)
  Sender: FDA-Public Use
  Company Number: US-JNJFOC-20100106167

PATIENT
  Sex: Female

DRUGS (13)
  1. LEVAQUIN [Suspect]
     Indication: URINARY TRACT INFECTION
     Route: 065
  2. ULTRAM [Suspect]
     Indication: PRODUCT USED FOR UNKNOWN INDICATION
     Route: 065
  3. APIXABAN [Suspect]
     Indication: THROMBOSIS PROPHYLAXIS
     Route: 048
  4. PLACEBO [Suspect]
     Indication: THROMBOSIS PROPHYLAXIS
     Route: 048
  5. WARFARIN SODIUM [Suspect]
     Indication: THROMBOSIS PROPHYLAXIS
     Route: 048
  6. OMEPRAZOLE [Concomitant]
     Route: 065
  7. XANAX [Concomitant]
     Route: 065
  8. NORCO [Concomitant]
     Route: 065
  9. LASIX [Concomitant]
     Route: 065
  10. LISINOPRIL [Concomitant]
     Route: 065
  11. IMDUR [Concomitant]
     Route: 065
  12. VITAMIN B-12 [Concomitant]
     Route: 065
  13. ALLOPURINOL [Concomitant]
     Route: 065

REACTIONS (5)
  - CONVULSION [None]
  - DEPRESSED LEVEL OF CONSCIOUSNESS [None]
  - HEMIPARESIS [None]
  - SYNCOPE [None]
  - VISUAL IMPAIRMENT [None]
